FAERS Safety Report 6865463-0 (Version None)
Quarter: 2010Q3

REPORT INFORMATION
  Report Type: 
  Country: None (occurrence: None)
  Receive Date: 20100721
  Receipt Date: 20080723
  Transmission Date: 20110219
  Serious: No
  Sender: FDA-Public Use
  Company Number: US-PFIZER INC-2008035583

PATIENT
  Sex: Female

DRUGS (4)
  1. CHANTIX [Suspect]
     Indication: SMOKING CESSATION THERAPY
     Dates: start: 20080101
  2. ASPIRIN [Concomitant]
  3. VITAMINS [Concomitant]
  4. FISH OIL [Concomitant]

REACTIONS (1)
  - WEIGHT DECREASED [None]
